FAERS Safety Report 4650402-3 (Version None)
Quarter: 2005Q2

REPORT INFORMATION
  Report Type: 
  Country: None (occurrence: None)
  Receive Date: 20050429
  Receipt Date: 20041015
  Transmission Date: 20051028
  Serious: Yes (Hospitalization)
  Sender: FDA-Public Use
  Company Number: A03200403490

PATIENT
  Age: 47 Year
  Sex: Male
  Weight: 83.9154 kg

DRUGS (9)
  1. PLAVIX [Suspect]
     Indication: CARDIAC VALVE DISEASE
     Dosage: 75 MG QD - ORAL
     Route: 048
     Dates: start: 20030529, end: 20030617
  2. PLAVIX [Suspect]
     Indication: FACTOR V LEIDEN MUTATION
     Dosage: 75 MG QD - ORAL
     Route: 048
     Dates: start: 20030529, end: 20030617
  3. ACETYL SALICYLIC ACID USP BAT [Concomitant]
  4. NITROGLYCERIN [Concomitant]
  5. NADOLOL [Concomitant]
  6. ATORVASTATIN [Concomitant]
  7. FEXOFENADINE HYDROCHLORIDE [Concomitant]
  8. TRAZODONE HCL [Concomitant]
  9. BECLOMETHASONE DIPROPIONATE [Concomitant]

REACTIONS (14)
  - ATRIAL FIBRILLATION [None]
  - CAROTID ARTERY ATHEROMA [None]
  - CEREBRAL ARTERY STENOSIS [None]
  - CEREBRAL INFARCTION [None]
  - COAGULOPATHY [None]
  - CORONARY ARTERY DISEASE [None]
  - DILATATION ATRIAL [None]
  - FACTOR V LEIDEN MUTATION [None]
  - HIGH DENSITY LIPOPROTEIN DECREASED [None]
  - HYPERLIPIDAEMIA [None]
  - LIPOPROTEIN (A) INCREASED [None]
  - MITRAL VALVE INCOMPETENCE [None]
  - MITRAL VALVE STENOSIS [None]
  - ROAD TRAFFIC ACCIDENT [None]
